FAERS Safety Report 25315177 (Version 5)
Quarter: 2025Q3

REPORT INFORMATION
  Report Type: Spontaneous
  Country: US (occurrence: US)
  Receive Date: 20250514
  Receipt Date: 20250828
  Transmission Date: 20251021
  Serious: Yes (Other)
  Sender: SANOFI AVENTIS
  Company Number: US-SA-2025SA137426

PATIENT
  Age: 41 Year
  Sex: Female

DRUGS (2)
  1. DUPIXENT [Suspect]
     Active Substance: DUPILUMAB
     Indication: Eosinophilic oesophagitis
     Dosage: 300 MG, QW
     Route: 058
     Dates: start: 202501, end: 202504
  2. DUPIXENT [Suspect]
     Active Substance: DUPILUMAB
     Dosage: 300 MG, QW
     Route: 058
     Dates: start: 2025, end: 20250821

REACTIONS (11)
  - Impaired gastric emptying [Unknown]
  - Retching [Unknown]
  - Dysphagia [Unknown]
  - Rebound atopic dermatitis [Unknown]
  - Eye pain [Unknown]
  - Injection site urticaria [Unknown]
  - Dry eye [Unknown]
  - Eye pruritus [Unknown]
  - Injection site reaction [Unknown]
  - Rash [Unknown]
  - Drug ineffective [Unknown]

NARRATIVE: CASE EVENT DATE: 20250101
